FAERS Safety Report 11954702 (Version 1)
Quarter: 2016Q1

REPORT INFORMATION
  Report Type: Report from Study
  Country: US (occurrence: US)
  Receive Date: 20160126
  Receipt Date: 20160126
  Transmission Date: 20160526
  Serious: No
  Sender: FDA-Public Use
  Company Number: US-ABBVIE-15K-163-1367582-00

PATIENT
  Age: 29 Year
  Sex: Male

DRUGS (2)
  1. HUMIRA [Suspect]
     Active Substance: ADALIMUMAB
     Indication: CROHN^S DISEASE
     Route: 065
     Dates: start: 20141221
  2. CLEOCIN [Interacting]
     Active Substance: CLINDAMYCIN PHOSPHATE
     Indication: WISDOM TEETH REMOVAL
     Route: 065

REACTIONS (3)
  - Wisdom teeth removal [Recovered/Resolved]
  - Crohn^s disease [Recovering/Resolving]
  - Drug interaction [Unknown]

NARRATIVE: CASE EVENT DATE: 20150318
